FAERS Safety Report 16847452 (Version 1)
Quarter: 2019Q3

REPORT INFORMATION
  Report Type: Spontaneous
  Country: US (occurrence: US)
  Receive Date: 20190924
  Receipt Date: 20190924
  Transmission Date: 20191005
  Serious: Yes (Hospitalization)
  Sender: FDA-Public Use
  Company Number: US-CELGENEUS-USA-20190907333

PATIENT
  Sex: Female
  Weight: 65.38 kg

DRUGS (7)
  1. THALOMID [Suspect]
     Active Substance: THALIDOMIDE
     Indication: LEPROSY
     Dosage: 100 MILLIGRAM
     Route: 048
     Dates: start: 201201
  2. THALOMID [Suspect]
     Active Substance: THALIDOMIDE
     Dosage: 200 MILLIGRAM
     Route: 048
     Dates: start: 201908
  3. THALOMID [Suspect]
     Active Substance: THALIDOMIDE
     Dosage: 350-300 MILLIGRAM
     Route: 048
     Dates: start: 201707
  4. THALOMID [Suspect]
     Active Substance: THALIDOMIDE
     Indication: PLASMA CELL MYELOMA RECURRENT
     Dosage: 300-100 MILLIGRAM
     Route: 048
     Dates: start: 201206
  5. THALOMID [Suspect]
     Active Substance: THALIDOMIDE
     Dosage: 100-400 MILLIGRAM
     Route: 048
     Dates: start: 201506
  6. THALOMID [Suspect]
     Active Substance: THALIDOMIDE
     Dosage: 250 MILLIGRAM
     Route: 048
     Dates: start: 201905
  7. THALOMID [Suspect]
     Active Substance: THALIDOMIDE
     Dosage: 400-300 MILLIGRAM
     Route: 048
     Dates: start: 201403

REACTIONS (1)
  - Neuropathy peripheral [Unknown]
